FAERS Safety Report 8292543-8 (Version None)
Quarter: 2012Q2

REPORT INFORMATION
  Report Type: 
  Country: None (occurrence: None)
  Receive Date: 20120417
  Receipt Date: 20120111
  Transmission Date: 20120825
  Serious: No
  Sender: FDA-Public Use
  Company Number: US-ASTRAZENECA-2012SE02245

PATIENT
  Age: 55 Year
  Sex: Male
  Weight: 102.1 kg

DRUGS (3)
  1. CHOLESTEROL MEDICATION [Concomitant]
     Indication: BLOOD CHOLESTEROL ABNORMAL
  2. DIABETES MEDICATION [Concomitant]
     Indication: DIABETES MELLITUS
  3. NEXIUM [Suspect]
     Indication: HIATUS HERNIA
     Route: 048

REACTIONS (3)
  - DYSPEPSIA [None]
  - OFF LABEL USE [None]
  - DRUG DOSE OMISSION [None]
